FAERS Safety Report 23880039 (Version 2)
Quarter: 2024Q2

REPORT INFORMATION
  Report Type: Report from Study
  Country: US (occurrence: US)
  Receive Date: 20240521
  Receipt Date: 20240612
  Transmission Date: 20240716
  Serious: Yes (Hospitalization, Other)
  Sender: FDA-Public Use
  Company Number: US-UCBSA-2023032890

PATIENT
  Age: 31 Year
  Sex: Male

DRUGS (7)
  1. FINTEPLA [Suspect]
     Active Substance: FENFLURAMINE
     Indication: Lennox-Gastaut syndrome
     Dosage: 3 ML AT 8 AM, 2 ML AT 3 PM, 3 ML AT BEDTIME
     Dates: start: 20230615
  2. FINTEPLA [Suspect]
     Active Substance: FENFLURAMINE
     Dosage: 3 MILLILITER, 2X/DAY FOR 7 DAYS (BID)
     Route: 048
     Dates: start: 20230617
  3. FINTEPLA [Suspect]
     Active Substance: FENFLURAMINE
     Dosage: 4 MILLILITER, 2X/DAY (BID) THEREAFTER
     Route: 048
     Dates: start: 20230617
  4. FINTEPLA [Suspect]
     Active Substance: FENFLURAMINE
     Dosage: 4 MILLILITER, 2X/DAY (BID)
  5. FINTEPLA [Suspect]
     Active Substance: FENFLURAMINE
     Dosage: 4 ML AT 9AM, 5 ML AT 3PM AND 2 ML AT NIGHT
  6. FINTEPLA [Suspect]
     Active Substance: FENFLURAMINE
     Dosage: 5.5 MILLILITER, 2X/DAY (BID)
     Route: 048
  7. FINTEPLA [Suspect]
     Active Substance: FENFLURAMINE
     Dosage: 4 ML AT QAM, 5 ML AT AFTERNOON AND 2 ML AT QPM

REACTIONS (7)
  - Vagal nerve stimulator implantation [Recovered/Resolved]
  - Seizure [Not Recovered/Not Resolved]
  - Self-destructive behaviour [Unknown]
  - Screaming [Not Recovered/Not Resolved]
  - Middle insomnia [Not Recovered/Not Resolved]
  - Drug ineffective [Unknown]
  - Off label use [Unknown]

NARRATIVE: CASE EVENT DATE: 20230615
